FAERS Safety Report 5415327-4 (Version None)
Quarter: 2007Q3

REPORT INFORMATION
  Report Type: 
  Country: None (occurrence: None)
  Receive Date: 20070815
  Receipt Date: 20070810
  Transmission Date: 20080115
  Serious: Yes (Other)
  Sender: FDA-Public Use
  Company Number: US-ASTRAZENECA-2007UW19471

PATIENT
  Age: 86 Year
  Sex: Female
  Weight: 59 kg

DRUGS (5)
  1. ARIMIDEX [Suspect]
     Indication: BREAST CANCER
     Route: 048
     Dates: start: 20010101
  2. ZOLOFT [Concomitant]
  3. PAXIL [Concomitant]
  4. TRAVATAN [Concomitant]
  5. MULTIVITAMIN [Concomitant]

REACTIONS (2)
  - ANAL CANCER [None]
  - PARAESTHESIA [None]
